FAERS Safety Report 20211428 (Version 1)
Quarter: 2021Q4

REPORT INFORMATION
  Report Type: Spontaneous
  Country: US (occurrence: None)
  Receive Date: 20211220
  Receipt Date: 20211220
  Transmission Date: 20220303
  Serious: Yes (Hospitalization)
  Sender: FDA-Public Use
  Company Number: None

PATIENT
  Age: 51 Year
  Sex: Female

DRUGS (2)
  1. ZEPOSIA [Suspect]
     Active Substance: OZANIMOD HYDROCHLORIDE
     Indication: Multiple sclerosis
     Route: 048
     Dates: start: 20210612
  2. AMBIEN [Concomitant]

REACTIONS (4)
  - Gastric disorder [None]
  - Hyperhidrosis [None]
  - Pallor [None]
  - Intentional dose omission [None]

NARRATIVE: CASE EVENT DATE: 20211217
